FAERS Safety Report 4423576-7 (Version None)
Quarter: 2004Q3

REPORT INFORMATION
  Report Type: 
  Country: None (occurrence: None)
  Receive Date: 20040805
  Receipt Date: 20040728
  Transmission Date: 20050211
  Serious: No
  Sender: FDA-Public Use
  Company Number: 03P-087-0240646-00

PATIENT
  Age: 74 Year
  Sex: Female

DRUGS (3)
  1. ISOPTIN [Suspect]
     Indication: ARRHYTHMIA
     Dosage: 40 MG, 2 IN 1 D, PER ORAL
     Route: 048
     Dates: start: 20020101, end: 20031016
  2. ASPIRIN [Concomitant]
  3. ATENOLOL [Concomitant]

REACTIONS (6)
  - HEADACHE [None]
  - HEPATITIS ACUTE [None]
  - LIVER DISORDER [None]
  - MALAISE [None]
  - NAUSEA [None]
  - PYREXIA [None]
